FAERS Safety Report 7760874-3 (Version None)
Quarter: 2011Q3

REPORT INFORMATION
  Report Type: 
  Country: None (occurrence: None)
  Receive Date: 20110919
  Receipt Date: 20110916
  Transmission Date: 20111222
  Serious: Yes (Other)
  Sender: FDA-Public Use
  Company Number: US-PFIZER INC-2011220467

PATIENT
  Sex: Female
  Weight: 86 kg

DRUGS (12)
  1. CHANTIX [Suspect]
     Dosage: UNK
     Dates: start: 20110916
  2. OXYCONTIN [Concomitant]
     Dosage: 60 MG, 2X/DAY
  3. CELEBREX [Suspect]
     Indication: ARTHRITIS
     Dosage: 200 MG, 2X/DAY
  4. PLAQUENIL [Concomitant]
     Dosage: 200 MG, 2X/DAY
  5. LISINOPRIL AND HYDROCHLOROTHIAZIDE [Concomitant]
     Dosage: 20/25MG
  6. CHANTIX [Suspect]
     Indication: SMOKING CESSATION THERAPY
     Dosage: UNK
     Dates: start: 20080101
  7. RAPAMUNE [Concomitant]
     Dosage: 220 MG, 1X/DAY
  8. NEURONTIN [Suspect]
     Indication: NEUROPATHY PERIPHERAL
     Dosage: 600 MG, 3X/DAY
     Route: 048
  9. PERCOCET [Concomitant]
     Dosage: UNK, 3X/DAY
  10. VITAMIN D [Concomitant]
     Dosage: 1.25 MG, WEEKLY
  11. OMEPRAZOLE [Concomitant]
     Dosage: 40 MG, 1X/DAY
  12. CELEBREX [Suspect]
     Dosage: 200 MG, 2X/DAY
     Dates: start: 20110601, end: 20110101

REACTIONS (3)
  - ARTHRITIS [None]
  - THERMAL BURN [None]
  - PURULENT DISCHARGE [None]
